FAERS Safety Report 4307130-3 (Version None)
Quarter: 2004Q1

REPORT INFORMATION
  Report Type: 
  Country: None (occurrence: None)
  Receive Date: 20040225
  Receipt Date: 20040213
  Transmission Date: 20041129
  Serious: Yes (Death)
  Sender: FDA-Public Use
  Company Number: GB-JNJFOC-20040204306

PATIENT
  Age: 75 Year
  Sex: Male

DRUGS (2)
  1. REMINYL (GALANTAMINE) [Suspect]
     Indication: DEMENTIA
     Dosage: 4 MG, 2 IN 1 DAY, ORAL; 8 MG, 2 IN 1 DAY, ORAL
     Route: 048
     Dates: start: 20030310, end: 20030410
  2. REMINYL (GALANTAMINE) [Suspect]
     Indication: DEMENTIA
     Dosage: 4 MG, 2 IN 1 DAY, ORAL; 8 MG, 2 IN 1 DAY, ORAL
     Route: 048
     Dates: start: 20030410

REACTIONS (1)
  - GALLBLADDER CANCER [None]
